FAERS Safety Report 6054719-X (Version None)
Quarter: 2009Q1

REPORT INFORMATION
  Report Type: 
  Country: None (occurrence: None)
  Receive Date: 20090128
  Receipt Date: 20090122
  Transmission Date: 20090719
  Serious: Yes (Life-Threatening, Hospitalization, Other)
  Sender: FDA-Public Use
  Company Number: CH-BRISTOL-MYERS SQUIBB COMPANY-14482343

PATIENT
  Age: 46 Year
  Sex: Female

DRUGS (5)
  1. REYATAZ [Suspect]
     Indication: HIV INFECTION
     Route: 048
     Dates: start: 20080801
  2. METHADONE HCL [Interacting]
     Indication: DRUG ABUSE
     Route: 048
     Dates: end: 20081231
  3. NORVIR [Interacting]
     Indication: HIV INFECTION
     Dosage: FORMULATION: CAPS
     Route: 048
     Dates: start: 20080801
  4. FLUVOXAMINE MALEATE [Interacting]
     Route: 048
  5. TRUVADA [Concomitant]
     Indication: HIV INFECTION
     Route: 048
     Dates: start: 20080801

REACTIONS (4)
  - COMA [None]
  - DRUG INTERACTION [None]
  - ELECTROCARDIOGRAM QT PROLONGED [None]
  - TORSADE DE POINTES [None]
